FAERS Safety Report 22241499 (Version 2)
Quarter: 2023Q2

REPORT INFORMATION
  Report Type: Spontaneous
  Country: FR (occurrence: FR)
  Receive Date: 20230421
  Receipt Date: 20230428
  Transmission Date: 20230721
  Serious: Yes (Other)
  Sender: FDA-Public Use
  Company Number: None

PATIENT
  Age: 54 Year
  Sex: Male

DRUGS (4)
  1. GABAPENTIN [Suspect]
     Active Substance: GABAPENTIN
     Indication: Product used for unknown indication
     Dosage: UNK (INCONNUE)
     Route: 048
     Dates: start: 202301, end: 20230124
  2. BROMAZEPAM [Suspect]
     Active Substance: BROMAZEPAM
     Indication: Product used for unknown indication
     Dosage: 2 DOSAGE FORM, TOTAL
     Route: 048
     Dates: start: 20230124, end: 20230124
  3. BROMAZEPAM [Suspect]
     Active Substance: BROMAZEPAM
     Dosage: 1.5 MG, QD
     Route: 048
     Dates: start: 20230124
  4. METHADONE [Suspect]
     Active Substance: METHADONE HYDROCHLORIDE
     Indication: Product substitution
     Dosage: 40 MG, QD
     Route: 048
     Dates: end: 20230124

REACTIONS (2)
  - Bradypnoea [Recovered/Resolved]
  - Altered state of consciousness [Recovered/Resolved]

NARRATIVE: CASE EVENT DATE: 20230124
